FAERS Safety Report 6773100-9 (Version None)
Quarter: 2010Q2

REPORT INFORMATION
  Report Type: 
  Country: None (occurrence: None)
  Receive Date: 20100616
  Receipt Date: 20100604
  Transmission Date: 20101027
  Serious: Yes (Other)
  Sender: FDA-Public Use
  Company Number: US-WYE-H15514210

PATIENT
  Sex: Female
  Weight: 54.48 kg

DRUGS (3)
  1. PRISTIQ [Suspect]
     Indication: ANXIETY
     Dosage: ^MILDEST DOSE^
     Dates: start: 20100401, end: 20100401
  2. PRISTIQ [Suspect]
     Indication: PANIC DISORDER
  3. AMBIEN [Concomitant]
     Indication: INSOMNIA
     Dosage: UNKNOWN

REACTIONS (3)
  - ACTIVITIES OF DAILY LIVING IMPAIRED [None]
  - DEPRESSION [None]
  - FATIGUE [None]
